FAERS Safety Report 23545049 (Version 1)
Quarter: 2024Q1

REPORT INFORMATION
  Report Type: Spontaneous
  Country: ES (occurrence: GB)
  Receive Date: 20240220
  Receipt Date: 20240220
  Transmission Date: 20240410
  Serious: Yes (Hospitalization, Other)
  Sender: FDA-Public Use
  Company Number: GB-Breckenridge Pharmaceutical, Inc.-2153441

PATIENT
  Age: 68 Year
  Sex: Female

DRUGS (6)
  1. OMEPRAZOLE [Suspect]
     Active Substance: OMEPRAZOLE
     Route: 048
  2. DULOXETINE [Suspect]
     Active Substance: DULOXETINE
  3. DERMOL (BENZALKONIUM CHLORIDE; ISOPROPYL MYRISTATE; LIQUID PARAFFIN; C [Concomitant]
  4. PREDNISOLONE [Concomitant]
     Active Substance: PREDNISOLONE
  5. LEVOTHYROXINE SODIUM [Concomitant]
     Active Substance: LEVOTHYROXINE SODIUM
  6. CALCIUM CARBONATE [Concomitant]
     Active Substance: CALCIUM CARBONATE

REACTIONS (3)
  - Inappropriate antidiuretic hormone secretion [Recovered/Resolved with Sequelae]
  - Constipation [Unknown]
  - Hyponatraemia [Unknown]
